FAERS Safety Report 24694908 (Version 1)
Quarter: 2024Q4

REPORT INFORMATION
  Report Type: Spontaneous
  Country: US (occurrence: None)
  Receive Date: 20241203
  Receipt Date: 20241203
  Transmission Date: 20250115
  Serious: No
  Sender: Public
  Company Number: None

PATIENT
  Age: 77 Year
  Sex: Male
  Weight: 70 kg

DRUGS (1)
  1. INFLIXIMAB-ABDA [Suspect]
     Active Substance: INFLIXIMAB-ABDA
     Indication: Irritable bowel syndrome
     Dosage: OTHER FREQUENCY : ONCE;?
     Route: 042
     Dates: start: 20240621

REACTIONS (2)
  - Headache [None]
  - Pruritus [None]

NARRATIVE: CASE EVENT DATE: 20241118
